FAERS Safety Report 11025093 (Version 2)
Quarter: 2015Q2

REPORT INFORMATION
  Report Type: Report from Study
  Country: JP (occurrence: None)
  Receive Date: 20150410
  Receipt Date: 20150504
  Transmission Date: 20150821
  Serious: Yes (Other)
  Sender: FDA-Public Use
  Company Number: 2009JP001732

PATIENT
  Age: 21 Year
  Sex: Female
  Weight: 54 kg

DRUGS (18)
  1. HERBESSER R (DILTIAZEM HYDROCHLORIDE) [Concomitant]
  2. NU-LOTAN (LOSARTAN POTASSIUM) [Concomitant]
  3. ZITHROMAC (AZITHROMYCIN) [Concomitant]
  4. PREDNISOLONE (PREDNISOLONE) PER ORAL NOS [Suspect]
     Active Substance: PREDNISOLONE
     Indication: LUPUS NEPHRITIS
     Route: 048
     Dates: end: 20071004
  5. ATELEC (CILNIDIPINE) [Concomitant]
     Active Substance: CILNIDIPINE
  6. DIOVAN [Concomitant]
     Active Substance: VALSARTAN
  7. MAINTATE (BISOPROLOL FUMARATE) [Concomitant]
  8. BAKUMONDOTO (GLYCYRRHIZA SPP. ROOT, OPHIOPOGON JAPONICUS TUBER, ORYZA SATIVA FRUIT, PANAX GINSENG ROOT, PINELLIA TERNATA TUBER, ZIZIPHUS JUJUBA VAR, INERMIS FRUIT) [Concomitant]
  9. PERSANTIN (DIPYRIDAMOLE) [Concomitant]
  10. PREMINENT (LOSARTAN POTASSIUM_HYDROCHLOROTHIAZIDE) [Concomitant]
  11. PROGRAF [Suspect]
     Active Substance: TACROLIMUS\TACROLIMUS ANHYDROUS
     Indication: LUPUS NEPHRITIS
     Route: 048
     Dates: start: 20070712, end: 20070808
  12. FOSAMAC (ALENDRONATE SODIUM) [Concomitant]
  13. MUCODYNE (CARBOCISTEINE) [Concomitant]
     Active Substance: CARBOCYSTEINE
  14. PARIET (SODIUM RABEPRAZOLE) [Concomitant]
  15. SOLON /00016201/ (PREDNISOLONE) [Concomitant]
  16. FERROMIA (SODIUM FERROUS CITRATE) [Concomitant]
  17. TAMIFLU [Concomitant]
     Active Substance: OSELTAMIVIR PHOSPHATE
  18. RESPLEN (EPRAZINONE HYDROCHLORIDE) [Concomitant]

REACTIONS (13)
  - Pharyngitis [None]
  - Headache [None]
  - Abdominal pain upper [None]
  - Blood pressure increased [None]
  - Double stranded DNA antibody positive [None]
  - Tachycardia [None]
  - Tubulointerstitial nephritis [None]
  - Renal impairment [None]
  - Iron deficiency anaemia [None]
  - Drug ineffective [None]
  - Bronchitis [None]
  - Influenza [None]
  - Immunosuppressant drug level increased [None]

NARRATIVE: CASE EVENT DATE: 20070719
